FAERS Safety Report 5616685-8 (Version None)
Quarter: 2008Q1

REPORT INFORMATION
  Report Type: 
  Country: None (occurrence: None)
  Receive Date: 20080204
  Receipt Date: 20080131
  Transmission Date: 20080703
  Serious: Yes (Hospitalization)
  Sender: FDA-Public Use
  Company Number: 2008SP000614

PATIENT
  Age: 48 Year
  Sex: Male
  Weight: 120 kg

DRUGS (7)
  1. VIRAFERON [Suspect]
     Indication: HEPATITIS C
     Dosage: SC
     Route: 058
     Dates: start: 20061001, end: 20070201
  2. COPEGUS [Suspect]
     Indication: HEPATITIS C
     Dosage: PO
     Route: 048
  3. METHADONE HCL [Concomitant]
  4. ATARAX [Concomitant]
  5. LIPANTHYL [Concomitant]
  6. IMOVANE [Concomitant]
  7. NOCTAMIDE [Concomitant]

REACTIONS (1)
  - PULMONARY INTERSTITIAL EMPHYSEMA SYNDROME [None]
